FAERS Safety Report 4958922-9 (Version None)
Quarter: 2006Q1

REPORT INFORMATION
  Report Type: 
  Country: None (occurrence: None)
  Receive Date: 20060331
  Receipt Date: 20060320
  Transmission Date: 20060701
  Serious: Yes (Other)
  Sender: FDA-Public Use
  Company Number: US-JNJFOC-20060304946

PATIENT
  Sex: Female
  Weight: 62.6 kg

DRUGS (31)
  1. REMICADE [Suspect]
     Route: 042
  2. REMICADE [Suspect]
     Indication: RHEUMATOID ARTHRITIS
     Dosage: TWO INFUSIONS ON UNSPECIFIED DATES.
     Route: 042
  3. AMIODARONE [Concomitant]
     Route: 048
  4. CATAPRES [Concomitant]
     Route: 062
  5. COLACE [Concomitant]
     Route: 048
  6. COUMADIN [Concomitant]
     Dosage: 5 MG/7.5 MG PO QD
     Route: 048
  7. FOLIC ACID [Concomitant]
     Route: 048
  8. LASIX [Concomitant]
     Route: 048
  9. NORVASC [Concomitant]
     Route: 048
  10. POTASSIUM CHLORIDE [Concomitant]
     Route: 048
  11. PRAVACHOL [Concomitant]
     Route: 048
  12. PREDNISONE [Concomitant]
     Route: 048
  13. PRENATAL [Concomitant]
     Route: 048
  14. PRENATAL [Concomitant]
     Route: 048
  15. PRENATAL [Concomitant]
     Route: 048
  16. PRENATAL [Concomitant]
     Route: 048
  17. PRENATAL [Concomitant]
     Route: 048
  18. PRENATAL [Concomitant]
     Route: 048
  19. PRENATAL [Concomitant]
     Route: 048
  20. PRENATAL [Concomitant]
     Route: 048
  21. PRENATAL [Concomitant]
     Route: 048
  22. PRENATAL [Concomitant]
     Route: 048
  23. PRENATAL [Concomitant]
     Route: 048
  24. PRENATAL [Concomitant]
     Route: 048
  25. PRENATAL [Concomitant]
     Route: 048
  26. SULFASALAZINE [Concomitant]
     Route: 048
  27. TOPROL-XL [Concomitant]
  28. TRAMADOL HCL [Concomitant]
     Route: 048
  29. TRAVATAN [Concomitant]
     Dosage: EACH EYE
  30. EXTRA STRENGTH TYLENOL [Concomitant]
     Dosage: Q HS
  31. AVAPRO [Concomitant]
     Route: 048

REACTIONS (1)
  - MALIGNANT MELANOMA [None]
